FAERS Safety Report 4521982-3 (Version None)
Quarter: 2004Q4

REPORT INFORMATION
  Report Type: 
  Country: None (occurrence: None)
  Receive Date: 20041207
  Receipt Date: 20041207
  Transmission Date: 20050328
  Serious: Yes (Other)
  Sender: FDA-Public Use
  Company Number: None

PATIENT
  Age: 66 Year
  Sex: Male
  Weight: 74.8435 kg

DRUGS (2)
  1. AMIODARONE  200MG  WYETH LABS [Suspect]
     Indication: ATRIAL FIBRILLATION
     Dosage: 200MG  DAILY  ORAL
     Route: 048
     Dates: start: 20010126, end: 20040508
  2. AMIODARONE  200MG  WYETH LABS [Suspect]
     Indication: ATRIAL FLUTTER
     Dosage: 200MG  DAILY  ORAL
     Route: 048
     Dates: start: 20010126, end: 20040508

REACTIONS (4)
  - DEPOSIT EYE [None]
  - LUNG NEOPLASM [None]
  - OFF LABEL USE [None]
  - THYROID NEOPLASM [None]
